FAERS Safety Report 7560692-5 (Version None)
Quarter: 2011Q2

REPORT INFORMATION
  Report Type: 
  Country: None (occurrence: None)
  Receive Date: 20110621
  Receipt Date: 20110620
  Transmission Date: 20111010
  Serious: Yes (Death, Other)
  Sender: FDA-Public Use
  Company Number: DE-PFIZER INC-2011136512

PATIENT

DRUGS (3)
  1. HEROIN [Suspect]
  2. FENTANYL [Suspect]
     Route: 062
  3. LYRICA [Suspect]

REACTIONS (2)
  - DRUG ABUSE [None]
  - CIRCULATORY COLLAPSE [None]
